FAERS Safety Report 25767921 (Version 1)
Quarter: 2025Q3

REPORT INFORMATION
  Report Type: Spontaneous
  Country: CN (occurrence: CN)
  Receive Date: 20250905
  Receipt Date: 20250905
  Transmission Date: 20251021
  Serious: Yes (Other)
  Sender: Kenvue
  Company Number: CN-KENVUE-20250901587

PATIENT

DRUGS (2)
  1. CHILDRENS MOTRIN [Suspect]
     Active Substance: IBUPROFEN
     Indication: Patent ductus arteriosus
     Dosage: 10 MILLIGRAM/KILOGRAM, ONCE A DAY (AS RETENTION ENEMA)
     Route: 054
     Dates: start: 20250501, end: 20250501
  2. CHILDRENS MOTRIN [Suspect]
     Active Substance: IBUPROFEN
     Dosage: 5 MILLIGRAM/KILOGRAM, ONCE A DAY (QD) (AS RETENTION ENEMA)
     Route: 054
     Dates: start: 20250502, end: 20250502

REACTIONS (2)
  - Off label use [Unknown]
  - Upper gastrointestinal haemorrhage [Recovered/Resolved]

NARRATIVE: CASE EVENT DATE: 20250501
